FAERS Safety Report 16763990 (Version 1)
Quarter: 2019Q3

REPORT INFORMATION
  Report Type: Spontaneous
  Country: US (occurrence: US)
  Receive Date: 20190902
  Receipt Date: 20190902
  Transmission Date: 20191005
  Serious: No
  Sender: FDA-Public Use
  Company Number: US-LEXICON PHARMACEUTICALS, INC-19-1606-00821

PATIENT
  Sex: Female

DRUGS (9)
  1. BREO ELLIPTA 100-25 [Concomitant]
  2. TELOTRISTAT ETHYL [Suspect]
     Active Substance: TELOTRISTAT ETHYL
     Indication: CARCINOID SYNDROME
     Route: 048
     Dates: start: 20181211
  3. VITAMIN D [Concomitant]
     Active Substance: VITAMIN D NOS
  4. SOMATULINE DEPOT [Concomitant]
     Active Substance: LANREOTIDE ACETATE
  5. ZOFRAN [Concomitant]
     Active Substance: ONDANSETRON HYDROCHLORIDE
  6. FLOVENT HFA 44MCG [Concomitant]
  7. ATORVASTIN [Concomitant]
     Active Substance: ATORVASTATIN
  8. XELODA [Concomitant]
     Active Substance: CAPECITABINE
  9. LEVOTHYROXINE. [Concomitant]
     Active Substance: LEVOTHYROXINE

REACTIONS (1)
  - Constipation [Unknown]
